FAERS Safety Report 21870428 (Version 1)
Quarter: 2023Q1

REPORT INFORMATION
  Report Type: Spontaneous
  Country: US (occurrence: None)
  Receive Date: 20230112
  Receipt Date: 20230112
  Transmission Date: 20230418
  Serious: No
  Sender: FDA-Public Use
  Company Number: None

PATIENT
  Age: 60 Year
  Sex: Female
  Weight: 57 kg

DRUGS (4)
  1. BRIMONIDINE [Suspect]
     Active Substance: BRIMONIDINE TARTRATE
     Indication: Open angle glaucoma
     Dosage: OTHER QUANTITY : 0.2;?
  2. BRIMONIDINE [Suspect]
     Active Substance: BRIMONIDINE TARTRATE
     Dosage: OTHER QUANTITY : 0.15;?
  3. BRIMONIDINE [Suspect]
     Active Substance: BRIMONIDINE TARTRATE
     Dosage: OTHER QUANTITY : 0.1;?
  4. TIMOLOL [Suspect]
     Active Substance: TIMOLOL
     Dosage: OTHER QUANTITY : 0.5;?

REACTIONS (6)
  - Visual impairment [None]
  - Product substitution issue [None]
  - Eye irritation [None]
  - Ocular hyperaemia [None]
  - Eye inflammation [None]
  - Impaired driving ability [None]
